FAERS Safety Report 7096115-2 (Version None)
Quarter: 2010Q4

REPORT INFORMATION
  Report Type: 
  Country: None (occurrence: None)
  Receive Date: 20101111
  Receipt Date: 20101028
  Transmission Date: 20110411
  Serious: Yes (Hospitalization)
  Sender: FDA-Public Use
  Company Number: CA-ROCHE-737546

PATIENT
  Sex: Female
  Weight: 62 kg

DRUGS (17)
  1. TRASTUZUMAB [Suspect]
     Dosage: DATE OF LAST DOSE PRIOR TO SAE:18 AUG 2010
     Route: 042
     Dates: start: 20100818
  2. TRASTUZUMAB [Suspect]
     Dosage: LAST DOSE PRIOR TO SAE 29 SEP 2010
     Route: 042
     Dates: start: 20100929
  3. PERTUZUMAB [Suspect]
     Dosage: DATE OF LAST DOSE PRIOR TO SAE:18 AUG 2010
     Route: 042
     Dates: start: 20100818
  4. PERTUZUMAB [Suspect]
     Dosage: LAST DOSE PRIOR TO SAE 29 SEP 2010
     Route: 042
     Dates: start: 20100929
  5. DOCETAXEL [Suspect]
     Dosage: DATE OF LAST DOSE PRIOR TO SAE:18 AUG 2010
     Route: 042
     Dates: start: 20100818
  6. DOCETAXEL [Suspect]
     Dosage: DOSE RDEUCED ON 29 SEPTEMBER 2010, IT WAS 106 MG EVERY 3 WEEKS CYCLE 3
     Route: 042
     Dates: start: 20100929
  7. LOPERAMIDE [Concomitant]
     Dosage: FREQUENCY: EVERY 4
  8. LOPERAMIDE [Concomitant]
     Dosage: DOSE 2- 8 MG
     Dates: start: 20100613
  9. ASPIRIN [Concomitant]
  10. METFORMIN HCL [Concomitant]
  11. DIAMICRON [Concomitant]
     Dosage: FRQUENCY NOT REPORTED
  12. HYDROCHLOROTHIAZIDE [Concomitant]
  13. PROCHLORPERAZINE [Concomitant]
     Dosage: FREQUENCY: EVERY 4 PM
  14. PROCHLORPERAZINE [Concomitant]
     Dosage: DOSE 10 - 40 MG
     Dates: start: 20100613
  15. OXYCODONE HCL [Concomitant]
     Dosage: 5 - 10 MG
     Dates: start: 20100707
  16. LORAZEPAM [Concomitant]
     Dosage: 1- 2 MG
     Dates: start: 20100708
  17. LISINOPRIL [Concomitant]

REACTIONS (19)
  - ABDOMINAL DISCOMFORT [None]
  - ADJUSTMENT DISORDER WITH ANXIETY [None]
  - ANAEMIA [None]
  - BLOOD LACTIC ACID INCREASED [None]
  - BLOOD PRESSURE DIASTOLIC DECREASED [None]
  - BLOOD SODIUM DECREASED [None]
  - CRYING [None]
  - DIARRHOEA [None]
  - GASTROENTERITIS [None]
  - GASTROENTERITIS BACTERIAL [None]
  - HEADACHE [None]
  - HYPERGLYCAEMIA [None]
  - HYPOMAGNESAEMIA [None]
  - NAUSEA [None]
  - PANIC ATTACK [None]
  - PLATELET COUNT INCREASED [None]
  - RESTLESSNESS [None]
  - VOMITING [None]
  - WHITE BLOOD CELL COUNT DECREASED [None]
